FAERS Safety Report 13069937 (Version 5)
Quarter: 2017Q2

REPORT INFORMATION
  Report Type: Report from Study
  Country: US (occurrence: US)
  Receive Date: 20161228
  Receipt Date: 20170602
  Transmission Date: 20170830
  Serious: Yes (Death, Hospitalization)
  Sender: FDA-Public Use
  Company Number: US-ACTELION-A-NJ2016-147422

PATIENT
  Age: 56 Year
  Sex: Female
  Weight: 85.71 kg

DRUGS (5)
  1. SILDENAFIL. [Concomitant]
     Active Substance: SILDENAFIL
  2. REMODULIN [Concomitant]
     Active Substance: TREPROSTINIL
     Route: 058
  3. ADCIRCA [Concomitant]
     Active Substance: TADALAFIL
  4. OPSUMIT [Suspect]
     Active Substance: MACITENTAN
     Indication: PULMONARY ARTERIAL HYPERTENSION
     Dosage: 10 MG, QD
     Route: 048
  5. OPSUMIT [Suspect]
     Active Substance: MACITENTAN
     Dosage: UNK
     Route: 048

REACTIONS (15)
  - Terminal state [Fatal]
  - Fluid retention [Unknown]
  - Concomitant disease progression [Unknown]
  - Pulmonary arterial hypertension [Fatal]
  - Acute kidney injury [Unknown]
  - Thrombocytopenia [Unknown]
  - Cardiorenal syndrome [Fatal]
  - Renal disorder [Unknown]
  - Anaemia [Unknown]
  - Condition aggravated [Unknown]
  - Blood pressure decreased [Unknown]
  - Right ventricular failure [Unknown]
  - Renal impairment [Unknown]
  - Cardiac failure [Unknown]
  - Ascites [Unknown]

NARRATIVE: CASE EVENT DATE: 20161129
